FAERS Safety Report 5076304-9 (Version None)
Quarter: 2006Q3

REPORT INFORMATION
  Report Type: 
  Country: None (occurrence: None)
  Receive Date: 20060807
  Receipt Date: 20060717
  Transmission Date: 20061208
  Serious: Yes (Hospitalization)
  Sender: FDA-Public Use
  Company Number: SPV1-2006-00233

PATIENT
  Age: 13 Year
  Sex: Female

DRUGS (1)
  1. CARBAMAZEPINE [Suspect]
     Indication: EPILEPSY
     Dosage: SEE IMAGE
     Route: 048

REACTIONS (4)
  - DRUG ERUPTION [None]
  - ERYTHEMA [None]
  - PRURIGO [None]
  - SKIN INFLAMMATION [None]
